FAERS Safety Report 13339763 (Version 1)
Quarter: 2017Q1

REPORT INFORMATION
  Report Type: Spontaneous
  Country: PL (occurrence: PL)
  Receive Date: 20170315
  Receipt Date: 20170315
  Transmission Date: 20170428
  Serious: Yes (Other)
  Sender: FDA-Public Use
  Company Number: PL-BAUSCH-BL-2017-006647

PATIENT
  Sex: Male
  Weight: 35 kg

DRUGS (1)
  1. XIFAXAN [Suspect]
     Active Substance: RIFAXIMIN
     Indication: DIVERTICULUM
     Dosage: 10 TABLETS
     Route: 048

REACTIONS (19)
  - Haematuria [Recovering/Resolving]
  - Hypoaesthesia [Not Recovered/Not Resolved]
  - Constipation [Recovering/Resolving]
  - Abdominal pain [Recovering/Resolving]
  - Angina pectoris [Recovering/Resolving]
  - Localised oedema [Recovering/Resolving]
  - Renal pain [Recovering/Resolving]
  - Muscle atrophy [Recovering/Resolving]
  - Movement disorder [Recovering/Resolving]
  - Deafness [Recovered/Resolved]
  - Blindness [Recovered/Resolved]
  - Dysgraphia [Not Recovered/Not Resolved]
  - Hepatic pain [Recovering/Resolving]
  - Blood pressure decreased [Recovering/Resolving]
  - Musculoskeletal stiffness [Not Recovered/Not Resolved]
  - Arthralgia [Recovering/Resolving]
  - Hyposmia [Not Recovered/Not Resolved]
  - Body temperature increased [Recovering/Resolving]
  - Dysgeusia [Not Recovered/Not Resolved]
